FAERS Safety Report 9132346 (Version 1)
Quarter: 2013Q1

REPORT INFORMATION
  Report Type: Spontaneous
  Country: SE (occurrence: SE)
  Receive Date: 20130301
  Receipt Date: 20130301
  Transmission Date: 20140127
  Serious: Yes (Hospitalization)
  Sender: FDA-Public Use
  Company Number: SE-PFIZER INC-2013070363

PATIENT
  Age: 92 Year
  Sex: Female

DRUGS (5)
  1. DOLCONTIN [Suspect]
     Dosage: 10 MG X 2
     Dates: start: 201209, end: 201210
  2. OXAZEPAM [Suspect]
     Dosage: UNK
     Dates: end: 201210
  3. OXYNORM [Suspect]
     Dosage: UNK
     Dates: end: 201210
  4. LOSARTAN [Concomitant]
  5. GABAPENTIN [Concomitant]
     Dosage: UNK

REACTIONS (9)
  - Vomiting [Recovered/Resolved]
  - Dehydration [Recovered/Resolved]
  - Hyperkalaemia [Recovered/Resolved]
  - Confusional state [Recovered/Resolved]
  - Renal failure acute [Recovered/Resolved]
  - Blood creatinine increased [Recovered/Resolved]
  - Hypophagia [None]
  - Haemoglobin decreased [None]
  - General physical health deterioration [None]
